FAERS Safety Report 7132787-1 (Version None)
Quarter: 2010Q4

REPORT INFORMATION
  Report Type: 
  Country: None (occurrence: None)
  Receive Date: 20101202
  Receipt Date: 20101123
  Transmission Date: 20110411
  Serious: Yes (Hospitalization, Other)
  Sender: FDA-Public Use
  Company Number: US-PFIZER INC-2010156291

PATIENT
  Sex: Female
  Weight: 93.6 kg

DRUGS (12)
  1. LYRICA [Suspect]
     Indication: PAIN
     Dosage: 150 MG, 2X/DAY
     Route: 048
  2. LYRICA [Suspect]
     Indication: HYPOAESTHESIA
  3. LYRICA [Suspect]
     Indication: PARAESTHESIA
  4. LYRICA [Suspect]
     Indication: NEUROPATHY PERIPHERAL
  5. MORPHINE [Concomitant]
     Dosage: UNK
  6. CLONIDINE [Concomitant]
     Dosage: 0.1 MG, 2X/DAY
  7. LISINOPRIL [Concomitant]
     Dosage: 40 MG, 1X/DAY
  8. XANAX [Concomitant]
     Dosage: 0.5 MG, 2X/DAY
  9. METOPROLOL [Concomitant]
     Dosage: 100 MG, 2X/DAY
  10. BUPROPION [Concomitant]
     Dosage: 75 MG, 2X/DAY
  11. NORCO [Concomitant]
     Dosage: 325 MG, AS NEEDED
  12. AMLODIPINE [Concomitant]
     Dosage: 7.5 MG, 1X/DAY

REACTIONS (2)
  - RENAL FAILURE ACUTE [None]
  - RHABDOMYOLYSIS [None]
